FAERS Safety Report 15881049 (Version 1)
Quarter: 2019Q1

REPORT INFORMATION
  Report Type: Spontaneous
  Country: DE (occurrence: DE)
  Receive Date: 20190128
  Receipt Date: 20190128
  Transmission Date: 20190417
  Serious: Yes (Hospitalization, Other)
  Sender: FDA-Public Use
  Company Number: DE-SA-A04200400022

PATIENT
  Age: 39 Year
  Sex: Male
  Weight: 69 kg

DRUGS (15)
  1. CARBAMAZEPINE. [Suspect]
     Active Substance: CARBAMAZEPINE
     Dosage: DOSE TEXT: SUCCESSIVE DOSE DECREASE TO 150 MG UNIT DOSE: 600 MG
     Route: 048
  2. VALPROATE SODIUM. [Concomitant]
     Active Substance: VALPROATE SODIUM
     Dosage: 300 MG,QD
     Route: 048
     Dates: start: 1996, end: 1996
  3. PHENYTOIN. [Suspect]
     Active Substance: PHENYTOIN
     Dosage: UNIT DOSE: 100 MG
     Route: 048
     Dates: start: 2001, end: 20011203
  4. TAXOFIT [Suspect]
     Active Substance: MINERALS\VITAMINS
     Indication: FATIGUE
     Dosage: DOSE TEXT: NOT REPORTED
     Route: 048
     Dates: start: 20011127, end: 20011203
  5. RANITIDINE. [Suspect]
     Active Substance: RANITIDINE
     Dosage: 300 MG, QD
     Route: 048
  6. BALDRIAN [VALERIANA OFFICINALIS] [Suspect]
     Active Substance: VALERIAN
     Dosage: UNK
     Route: 048
  7. PARACETAMOL [Suspect]
     Active Substance: ACETAMINOPHEN
     Indication: NASOPHARYNGITIS
     Dosage: UNK
     Route: 048
     Dates: start: 20011128, end: 20011203
  8. METOCLOPRAMIDE HYDROCHLORIDE. [Suspect]
     Active Substance: METOCLOPRAMIDE HYDROCHLORIDE
     Indication: NAUSEA
     Dosage: 20 GTT DROPS, TID
     Route: 048
     Dates: start: 20011128, end: 20011203
  9. VALPROATE SODIUM. [Concomitant]
     Active Substance: VALPROATE SODIUM
     Dosage: 1000 MG,QD
     Route: 048
     Dates: start: 1996, end: 20011112
  10. CARBAMAZEPINE. [Suspect]
     Active Substance: CARBAMAZEPINE
     Indication: EPILEPSY
     Dosage: UNK UNK, QD
     Route: 048
     Dates: start: 1978, end: 20011112
  11. VALPROATE SODIUM. [Suspect]
     Active Substance: VALPROATE SODIUM
     Indication: EPILEPSY
     Dosage: 300 MG,QD
     Route: 048
     Dates: start: 20011113, end: 20011203
  12. PHENYTOIN. [Suspect]
     Active Substance: PHENYTOIN
     Indication: EPILEPSY
     Dosage: DOSE TEXT: VARYING DOSE BETWEEN 350 AND 400 MG UNIT DOSE: 100 MG
     Route: 048
     Dates: start: 20011025, end: 2001
  13. ERGENYL CHRONO [Suspect]
     Active Substance: VALPROIC ACID
     Indication: EPILEPSY
     Dosage: 1000 MG,BID
     Route: 048
     Dates: start: 20011113
  14. VALERIANA OFFICINALIS EXTRACT [Suspect]
     Active Substance: VALERIAN
     Indication: RESTLESSNESS
     Dosage: DOSE TEXT: 4 TABLETS IN TOTAL, IRREGULAR INTAKE UNIT DOSE: 200 MG
     Route: 048
     Dates: start: 20011201, end: 20011203
  15. VALPROATE SODIUM. [Suspect]
     Active Substance: VALPROATE SODIUM
     Dosage: 300 MG, QD
     Route: 048
     Dates: start: 1996, end: 1996

REACTIONS (17)
  - Liver function test abnormal [Unknown]
  - Swelling face [Recovering/Resolving]
  - Erythema [Recovering/Resolving]
  - Nasopharyngitis [Unknown]
  - Epilepsy [Unknown]
  - Restlessness [Unknown]
  - Alanine aminotransferase increased [Unknown]
  - Dysphagia [Unknown]
  - Pyrexia [Recovering/Resolving]
  - Mucosal erosion [Recovering/Resolving]
  - Fatigue [Unknown]
  - Rash macular [Recovering/Resolving]
  - Gamma-glutamyltransferase increased [Unknown]
  - Aspartate aminotransferase increased [Unknown]
  - Pruritus [Recovering/Resolving]
  - Stevens-Johnson syndrome [Recovering/Resolving]
  - Nausea [Unknown]

NARRATIVE: CASE EVENT DATE: 20011127
